FAERS Safety Report 16954454 (Version 4)
Quarter: 2020Q1

REPORT INFORMATION
  Report Type: Report from Study
  Country: US (occurrence: US)
  Receive Date: 20191023
  Receipt Date: 20200121
  Transmission Date: 20200409
  Serious: Yes (Hospitalization, Disabling, Other)
  Sender: FDA-Public Use
  Company Number: US-GILEAD-2019-0397068

PATIENT
  Age: 66 Year
  Sex: Female
  Weight: 65.2 kg

DRUGS (78)
  1. FLUDARABINE [Suspect]
     Active Substance: FLUDARABINE PHOSPHATE
     Indication: BONE MARROW CONDITIONING REGIMEN
     Dosage: ^30^, QD
     Route: 042
     Dates: start: 20190410, end: 20190412
  2. MESNA. [Suspect]
     Active Substance: MESNA
     Indication: PROPHYLAXIS
     Dosage: ^810^, QD
     Route: 042
     Dates: start: 20190410, end: 20190412
  3. ACETAMINOPHEN. [Concomitant]
     Active Substance: ACETAMINOPHEN
     Dosage: 650,MG,OTHER
     Route: 048
     Dates: start: 20190415, end: 20190415
  4. FAMOTIDINE. [Concomitant]
     Active Substance: FAMOTIDINE
     Dosage: UNK
     Dates: start: 20190315, end: 20190315
  5. METHYLPREDNISOLONE. [Concomitant]
     Active Substance: METHYLPREDNISOLONE
     Dosage: UNK
     Dates: start: 20190912, end: 20190915
  6. LORAZEPAM. [Concomitant]
     Active Substance: LORAZEPAM
     Dosage: UNK
     Dates: start: 20190412, end: 20190414
  7. CRYOPRECIPITATE [Concomitant]
     Active Substance: CRYOPRECIPITATED ANTIHEMOPHILIC FACTOR (HUMAN)
     Dosage: 107,ML,DAILY
     Route: 041
     Dates: start: 20190429, end: 20190429
  8. FLUCONAZOLE. [Concomitant]
     Active Substance: FLUCONAZOLE
     Dosage: 200,MG,DAILY
     Route: 048
     Dates: start: 20190425, end: 20190501
  9. POTASSIUM PHOSPHATES [Concomitant]
     Active Substance: POTASSIUM PHOSPHATE, DIBASIC\POTASSIUM PHOSPHATE, MONOBASIC
     Dosage: UNK
     Dates: start: 20190426, end: 20190426
  10. CALCIUM + VIT D [Concomitant]
     Active Substance: CALCIUM\VITAMIN D
     Dosage: UNK
     Dates: start: 20190921
  11. RITUXIMAB. [Concomitant]
     Active Substance: RITUXIMAB
     Indication: CHEMOTHERAPY
     Dosage: 618.8,MG,DAILY
     Route: 041
     Dates: start: 20190315, end: 20190315
  12. DIPHENHYDRAMINE. [Concomitant]
     Active Substance: DIPHENHYDRAMINE
     Dosage: UNK
     Dates: start: 20190315, end: 20190315
  13. ONDANSETRON [Concomitant]
     Active Substance: ONDANSETRON
     Dosage: UNK
     Dates: start: 20190317, end: 20190413
  14. MORPHINE [Concomitant]
     Active Substance: MORPHINE
     Dosage: UNK
     Dates: start: 20190314, end: 20190314
  15. CRYOPRECIPITATE [Concomitant]
     Active Substance: CRYOPRECIPITATED ANTIHEMOPHILIC FACTOR (HUMAN)
     Dosage: UNK
     Dates: start: 20190420, end: 20190429
  16. CRYOPRECIPITATE [Concomitant]
     Active Substance: CRYOPRECIPITATED ANTIHEMOPHILIC FACTOR (HUMAN)
     Dosage: 105,ML,OTHER
     Route: 041
     Dates: start: 20190421, end: 20190421
  17. CRYOPRECIPITATE [Concomitant]
     Active Substance: CRYOPRECIPITATED ANTIHEMOPHILIC FACTOR (HUMAN)
     Dosage: 103,ML,DAILY
     Route: 041
     Dates: start: 20190423, end: 20190423
  18. SODIUM CHLORIDE 0.9% [Concomitant]
     Active Substance: SODIUM CHLORIDE
     Dosage: 10,OTHER,OTHER
     Route: 041
     Dates: start: 20190415, end: 20190415
  19. SODIUM CHLORIDE 0.9% [Concomitant]
     Active Substance: SODIUM CHLORIDE
     Dosage: UNK
     Dates: start: 20190219, end: 20190501
  20. AXICABTAGENE CILOLEUCEL [Suspect]
     Active Substance: AXICABTAGENE CILOLEUCEL
     Indication: MARGINAL ZONE LYMPHOMA
     Dosage: 68 ML, ONCE
     Route: 042
     Dates: start: 20190415, end: 20190415
  21. PROPOFOL. [Concomitant]
     Active Substance: PROPOFOL
     Dosage: UNK
     Dates: start: 20190219, end: 20190219
  22. LIDOCAINE. [Concomitant]
     Active Substance: LIDOCAINE
     Dosage: 2 ML, TID
     Dates: start: 20190920, end: 20190920
  23. LEVOFLOXACIN. [Concomitant]
     Active Substance: LEVOFLOXACIN
     Dosage: UNK
     Dates: start: 20190308, end: 20190315
  24. LEVOFLOXACIN. [Concomitant]
     Active Substance: LEVOFLOXACIN
     Dosage: UNK
     Route: 041
     Dates: start: 20190920, end: 20190920
  25. ACETAMINOPHEN. [Concomitant]
     Active Substance: ACETAMINOPHEN
     Dosage: UNK
     Dates: start: 20190315, end: 20190424
  26. ACETAMINOPHEN. [Concomitant]
     Active Substance: ACETAMINOPHEN
     Dosage: 650,MG,TWICE DAILY
     Route: 048
     Dates: start: 20190418, end: 20190419
  27. DIPHENHYDRAMINE. [Concomitant]
     Active Substance: DIPHENHYDRAMINE
     Dosage: UNK
     Dates: start: 20190420, end: 20190421
  28. RED BLOOD CELLS [Concomitant]
     Active Substance: HUMAN RED BLOOD CELL
     Dosage: 250,ML,OTHER
     Route: 041
     Dates: start: 20190416, end: 20190416
  29. RED BLOOD CELLS [Concomitant]
     Active Substance: HUMAN RED BLOOD CELL
     Dosage: 340,ML,OTHER
     Route: 041
     Dates: start: 20190420, end: 20190420
  30. RED BLOOD CELLS [Concomitant]
     Active Substance: HUMAN RED BLOOD CELL
     Dosage: 340,ML,OTHER
     Route: 041
     Dates: start: 20190422, end: 20190422
  31. RED BLOOD CELLS [Concomitant]
     Active Substance: HUMAN RED BLOOD CELL
     Dosage: UNK
     Dates: start: 20190417, end: 20190417
  32. PROCHLORPERAZINE. [Concomitant]
     Active Substance: PROCHLORPERAZINE
     Dosage: UNK
     Dates: start: 20190414, end: 20190502
  33. CRYOPRECIPITATE [Concomitant]
     Active Substance: CRYOPRECIPITATED ANTIHEMOPHILIC FACTOR (HUMAN)
     Dosage: 111,ML,OTHER
     Route: 041
     Dates: start: 20190420, end: 20190420
  34. POTASSIUM PHOSPHATES [Concomitant]
     Active Substance: POTASSIUM PHOSPHATE, DIBASIC\POTASSIUM PHOSPHATE, MONOBASIC
     Dosage: UNK
     Dates: start: 20190426, end: 20190428
  35. BISACODYL. [Concomitant]
     Active Substance: BISACODYL
     Dosage: UNK
     Dates: start: 20190426, end: 20190427
  36. SODIUM CHLORIDE 0.9% [Concomitant]
     Active Substance: SODIUM CHLORIDE
     Dosage: 2000,ML,DAILY
     Route: 041
     Dates: start: 20190410, end: 20190412
  37. BENDAMUSTINE [Concomitant]
     Active Substance: BENDAMUSTINE
     Indication: CHEMOTHERAPY
     Dosage: 147.5,MG,DAILY
     Route: 041
     Dates: start: 20190315, end: 20190316
  38. ALLOPURINOL. [Concomitant]
     Active Substance: ALLOPURINOL
     Dosage: 300,MG,TWICE DAILY
     Route: 048
     Dates: start: 20190422, end: 20190424
  39. ACETAMINOPHEN. [Concomitant]
     Active Substance: ACETAMINOPHEN
     Dosage: 1000,MG,OTHER
     Route: 048
     Dates: start: 20190920, end: 20190920
  40. MEPERIDINE [PETHIDINE] [Concomitant]
     Active Substance: MEPERIDINE
     Dosage: UNK
     Dates: start: 20190315, end: 20190315
  41. PALONOSETRON. [Concomitant]
     Active Substance: PALONOSETRON HYDROCHLORIDE
     Dosage: UNK
     Dates: start: 20190412, end: 20190412
  42. DOCUSATE [Concomitant]
     Active Substance: DOCUSATE
     Dosage: 100,MG,TWICE DAILY
     Route: 048
     Dates: start: 20190423, end: 20190428
  43. PLATELETS [Concomitant]
     Active Substance: HUMAN PLATELET, ALLOGENIC
     Dosage: 391,ML,OTHER
     Route: 041
     Dates: start: 20190421, end: 20190421
  44. CRYOPRECIPITATE [Concomitant]
     Active Substance: CRYOPRECIPITATED ANTIHEMOPHILIC FACTOR (HUMAN)
     Dosage: 107,ML,DAILY
     Route: 041
     Dates: start: 20190424, end: 20190424
  45. PREDNISONE. [Concomitant]
     Active Substance: PREDNISONE
     Dosage: 20,MG,DAILY
     Route: 048
     Dates: start: 20190422, end: 20190422
  46. CALCIUM + VIT D [Concomitant]
     Active Substance: CALCIUM\VITAMIN D
     Dosage: UNK
     Dates: start: 20190502
  47. PHENYLEPHRINE [Concomitant]
     Active Substance: PHENYLEPHRINE HYDROCHLORIDE
     Dosage: UNK
     Dates: start: 20190219, end: 20190219
  48. LIDOCAINE. [Concomitant]
     Active Substance: LIDOCAINE
     Dosage: UNK
     Dates: start: 20190219, end: 20190219
  49. ACID-CITRATE-GLUCOSE [Concomitant]
     Dosage: UNK
     Dates: start: 20190306, end: 20190306
  50. PANTOPRAZOLE [Concomitant]
     Active Substance: PANTOPRAZOLE
     Dosage: 40,MG,DAILY
     Route: 048
     Dates: start: 20190415, end: 20190501
  51. PEGFILGRASTIM JMDB [Concomitant]
     Dosage: UNK
     Dates: start: 20190318, end: 20190318
  52. PLATELETS [Concomitant]
     Active Substance: HUMAN PLATELET, ALLOGENIC
     Dosage: 267,ML,OTHER
     Route: 041
     Dates: start: 20190420, end: 20190420
  53. CRYOPRECIPITATE [Concomitant]
     Active Substance: CRYOPRECIPITATED ANTIHEMOPHILIC FACTOR (HUMAN)
     Dosage: 105,ML,DAILY
     Route: 041
     Dates: start: 20190427, end: 20190427
  54. MULTIVITAMINS [VITAMINS NOS] [Concomitant]
     Active Substance: VITAMINS
     Dosage: UNK
     Dates: start: 20190502
  55. SODIUM CHLORIDE 0.9% [Concomitant]
     Active Substance: SODIUM CHLORIDE
     Dosage: 1000,ML,OTHER
     Route: 041
     Dates: start: 20190414, end: 20190414
  56. SODIUM CHLORIDE 0.9% [Concomitant]
     Active Substance: SODIUM CHLORIDE
     Dosage: 10,OTHER,OTHER
     Route: 041
     Dates: start: 20190417, end: 20190418
  57. SODIUM CHLORIDE 0.9% [Concomitant]
     Active Substance: SODIUM CHLORIDE
     Dosage: 1000,ML,TWICE DAILY
     Route: 041
     Dates: start: 20190418, end: 20190418
  58. SODIUM CHLORIDE 0.9% [Concomitant]
     Active Substance: SODIUM CHLORIDE
     Dosage: 10,OTHER,OTHER
     Route: 041
     Dates: start: 20190422, end: 20190501
  59. BUPIVACAINE. [Concomitant]
     Active Substance: BUPIVACAINE
     Dosage: UNK
     Dates: start: 20190219, end: 20190219
  60. ENOXAPARIN [Concomitant]
     Active Substance: ENOXAPARIN
     Dosage: 40,MG,DAILY
     Route: 058
     Dates: start: 20190315, end: 20190317
  61. METHYLPREDNISOLONE. [Concomitant]
     Active Substance: METHYLPREDNISOLONE
     Dosage: UNK
     Route: 041
     Dates: start: 20190315, end: 20190419
  62. PROCHLORPERAZINE. [Concomitant]
     Active Substance: PROCHLORPERAZINE
     Dosage: 10,MG,DAILY
     Route: 048
     Dates: start: 20190502, end: 20191004
  63. DOCUSATE [Concomitant]
     Active Substance: DOCUSATE
     Dosage: UNK
     Dates: start: 20190417, end: 20190501
  64. DOCUSATE [Concomitant]
     Active Substance: DOCUSATE
     Dosage: 100,MG,TWICE DAILY
     Route: 048
     Dates: start: 20190417, end: 20190417
  65. DOCUSATE [Concomitant]
     Active Substance: DOCUSATE
     Dosage: 100,MG,DAILY
     Route: 048
     Dates: start: 20190418, end: 20190422
  66. SENNA [SENNOSIDE A+B] [Concomitant]
     Dosage: UNK
     Route: 048
     Dates: start: 20190426, end: 20190430
  67. SODIUM CHLORIDE 0.9% [Concomitant]
     Active Substance: SODIUM CHLORIDE
     Dosage: 2000,ML,OTHER
     Route: 041
     Dates: start: 20190416, end: 20190416
  68. CYCLOPHOSPHAMIDE. [Suspect]
     Active Substance: CYCLOPHOSPHAMIDE
     Indication: BONE MARROW CONDITIONING REGIMEN
     Dosage: ^500^, QD
     Route: 042
     Dates: start: 20190410, end: 20190412
  69. ACETAMINOPHEN. [Concomitant]
     Active Substance: ACETAMINOPHEN
     Dosage: 650,MG,AS NECESSARY
     Route: 048
     Dates: start: 20190415, end: 20190418
  70. ONDANSETRON [Concomitant]
     Active Substance: ONDANSETRON
     Dosage: UNK
     Dates: start: 20190316, end: 20190413
  71. RED BLOOD CELLS [Concomitant]
     Active Substance: HUMAN RED BLOOD CELL
     Dosage: 250,ML,DAILY
     Route: 041
     Dates: start: 20190424, end: 20190424
  72. PLATELETS [Concomitant]
     Active Substance: HUMAN PLATELET, ALLOGENIC
     Dosage: UNK
     Dates: start: 20190420, end: 20190421
  73. CALCIUM GLUCONATE. [Concomitant]
     Active Substance: CALCIUM GLUCONATE
     Dosage: UNK
     Dates: start: 20190306, end: 20190306
  74. METHYLPREDNISOLONE. [Concomitant]
     Active Substance: METHYLPREDNISOLONE
     Dosage: 60,MG,TWICE DAILY
     Route: 041
     Dates: start: 20190418, end: 20190419
  75. ONDANSETRON [Concomitant]
     Active Substance: ONDANSETRON
     Dosage: UNK
     Route: 041
     Dates: start: 20190410, end: 20190410
  76. PHYTONADIONE. [Concomitant]
     Active Substance: PHYTONADIONE
     Dosage: 10,MG,DAILY
     Route: 048
     Dates: start: 20190419, end: 20190419
  77. CRYOPRECIPITATE [Concomitant]
     Active Substance: CRYOPRECIPITATED ANTIHEMOPHILIC FACTOR (HUMAN)
     Dosage: 102,ML,OTHER
     Route: 041
     Dates: start: 20190422, end: 20190422
  78. POTASSIUM PHOSPHATES [Concomitant]
     Active Substance: POTASSIUM PHOSPHATE, DIBASIC\POTASSIUM PHOSPHATE, MONOBASIC
     Dosage: UNK
     Dates: start: 20190422, end: 20190422

REACTIONS (20)
  - Hypotension [Recovered/Resolved]
  - Blood bilirubin increased [Recovered/Resolved with Sequelae]
  - Hypoxia [Recovered/Resolved]
  - Pyrexia [Recovered/Resolved]
  - Aspartate aminotransferase increased [Recovered/Resolved]
  - Alanine aminotransferase increased [Recovered/Resolved]
  - Blood fibrinogen decreased [Recovered/Resolved]
  - Alanine aminotransferase increased [Recovered/Resolved]
  - Blood alkaline phosphatase increased [Recovered/Resolved]
  - Blood fibrinogen decreased [Recovered/Resolved]
  - Pyrexia [Recovered/Resolved with Sequelae]
  - Aspartate aminotransferase increased [Recovered/Resolved with Sequelae]
  - Pyrexia [Recovered/Resolved]
  - Blood bilirubin increased [Recovered/Resolved]
  - Haptoglobin decreased [Recovered/Resolved]
  - Cytokine release syndrome [Recovered/Resolved]
  - Aspartate aminotransferase increased [Recovered/Resolved]
  - Neutrophil count decreased [Recovered/Resolved with Sequelae]
  - Abdominal pain upper [Recovered/Resolved]
  - Alanine aminotransferase increased [Recovered/Resolved]

NARRATIVE: CASE EVENT DATE: 20190416
